FAERS Safety Report 11105955 (Version 1)
Quarter: 2015Q2

REPORT INFORMATION
  Report Type: Spontaneous
  Country: GB (occurrence: GB)
  Receive Date: 20150512
  Receipt Date: 20150512
  Transmission Date: 20150821
  Serious: Yes (Other)
  Sender: FDA-Public Use
  Company Number: GB-SA-2015SA061036

PATIENT
  Age: 22 Year
  Sex: Male
  Weight: 50 kg

DRUGS (34)
  1. DIAMORPHINE [Concomitant]
     Active Substance: DIACETYLMORPHINE
  2. FUROSEMIDE. [Concomitant]
     Active Substance: FUROSEMIDE
  3. HEPARIN [Concomitant]
     Active Substance: HEPARIN SODIUM
  4. PARACETAMOL [Concomitant]
     Active Substance: ACETAMINOPHEN
  5. SODIUM LACTATE. [Concomitant]
     Active Substance: SODIUM LACTATE
     Dosage: SOLUTION
  6. VANCOMYCIN [Concomitant]
     Active Substance: VANCOMYCIN
  7. FENTANYL. [Concomitant]
     Active Substance: FENTANYL
  8. HYOSCINE HYDROBROMIDE [Concomitant]
     Active Substance: SCOPOLAMINE
  9. RIFAMPICIN [Suspect]
     Active Substance: RIFAMPIN
     Indication: WOUND INFECTION STAPHYLOCOCCAL
     Route: 042
     Dates: start: 20150423, end: 20150424
  10. ACCUSOL [Concomitant]
  11. ERYTHROCIN [Concomitant]
     Active Substance: ERYTHROMYCIN LACTOBIONATE
  12. NOREPINEPHRINE [Concomitant]
     Active Substance: NOREPINEPHRINE\NOREPINEPHRINE BITARTRATE
  13. NYSTATIN. [Concomitant]
     Active Substance: NYSTATIN
  14. RANITIDINE [Concomitant]
     Active Substance: RANITIDINE\RANITIDINE HYDROCHLORIDE
  15. CLOTRIMAZOLE. [Concomitant]
     Active Substance: CLOTRIMAZOLE
  16. PABRINEX [Concomitant]
  17. ROCURONIUM [Concomitant]
     Active Substance: ROCURONIUM BROMIDE
  18. BENZHEXOL [Concomitant]
     Active Substance: TRIHEXYPHENIDYL
  19. LINEZOLID. [Concomitant]
     Active Substance: LINEZOLID
  20. MAGNESIUM SULFATE. [Concomitant]
     Active Substance: MAGNESIUM SULFATE
  21. MEBEVERINE [Concomitant]
     Active Substance: MEBEVERINE
  22. BUDESONIDE. [Concomitant]
     Active Substance: BUDESONIDE
  23. LANSOPRAZOLE. [Concomitant]
     Active Substance: LANSOPRAZOLE
  24. MEROPENEM. [Concomitant]
     Active Substance: MEROPENEM
  25. AZITHROMYCIN [Concomitant]
     Active Substance: AZITHROMYCIN ANHYDROUS
  26. SALBUTAMOL [Concomitant]
     Active Substance: ALBUTEROL
  27. CLONAZEPAM. [Concomitant]
     Active Substance: CLONAZEPAM
  28. COLISTIMETHATE SODIUM. [Concomitant]
     Active Substance: COLISTIMETHATE SODIUM
  29. DIAZEPAM. [Concomitant]
     Active Substance: DIAZEPAM
  30. TAZOBACTAM/PIPERACILLIN [Concomitant]
  31. POTASSIUM CHLORIDE. [Concomitant]
     Active Substance: POTASSIUM CHLORIDE
  32. PROPOFOL. [Concomitant]
     Active Substance: PROPOFOL
  33. REMIFENTANIL [Concomitant]
     Active Substance: REMIFENTANIL
  34. TINZAPARIN [Concomitant]
     Active Substance: TINZAPARIN

REACTIONS (1)
  - Acute kidney injury [Not Recovered/Not Resolved]

NARRATIVE: CASE EVENT DATE: 20150424
